FAERS Safety Report 13335805 (Version 1)
Quarter: 2017Q1

REPORT INFORMATION
  Report Type: Spontaneous
  Country: JP (occurrence: JP)
  Receive Date: 20170314
  Receipt Date: 20170314
  Transmission Date: 20170428
  Serious: Yes (Hospitalization)
  Sender: FDA-Public Use
  Company Number: JP-TOLMAR, INC.-TOLG20170090

PATIENT
  Age: 78 Year
  Sex: Female

DRUGS (1)
  1. IMIQUIMOD. [Suspect]
     Active Substance: IMIQUIMOD
     Indication: ACTINIC KERATOSIS
     Route: 061

REACTIONS (6)
  - Erythrodermic psoriasis [Recovering/Resolving]
  - Erythema [Recovering/Resolving]
  - Parakeratosis [Recovering/Resolving]
  - Acanthosis [Recovering/Resolving]
  - Lichenoid keratosis [Recovering/Resolving]
  - Skin exfoliation [Recovering/Resolving]
